FAERS Safety Report 5321482-7 (Version None)
Quarter: 2007Q2

REPORT INFORMATION
  Report Type: 
  Country: None (occurrence: None)
  Receive Date: 20070510
  Receipt Date: 20070508
  Transmission Date: 20071010
  Serious: Yes (Life-Threatening)
  Sender: FDA-Public Use
  Company Number: CN-ASTRAZENECA-2007AP02551

PATIENT
  Age: 3 Year
  Sex: Male

DRUGS (1)
  1. DIPRIVAN [Suspect]
     Indication: INDUCTION OF ANAESTHESIA
     Route: 042
     Dates: start: 20060701

REACTIONS (3)
  - APALLIC SYNDROME [None]
  - CONVULSION [None]
  - POSTOPERATIVE FEVER [None]
